FAERS Safety Report 4762287-5 (Version None)
Quarter: 2005Q3

REPORT INFORMATION
  Report Type: 
  Country: None (occurrence: None)
  Receive Date: 20050907
  Receipt Date: 20050826
  Transmission Date: 20060218
  Serious: Yes (Other)
  Sender: FDA-Public Use
  Company Number: US-BOEHRINGER INGELHEIM PHARMACEUTICALS, INC.-2005-DE-03428GD

PATIENT

DRUGS (2)
  1. CLONIDINE [Suspect]
     Indication: BLOOD GROWTH HORMONE
     Dosage: 0.15 MG/ME2
     Route: 048
  2. CLONIDINE [Suspect]
     Indication: DIAGNOSTIC PROCEDURE

REACTIONS (2)
  - HYPOXIA [None]
  - RESPIRATORY DEPRESSION [None]
